FAERS Safety Report 10226471 (Version 1)
Quarter: 2014Q2

REPORT INFORMATION
  Report Type: Spontaneous
  Country: US (occurrence: US)
  Receive Date: 20140609
  Receipt Date: 20140609
  Transmission Date: 20141212
  Serious: No
  Sender: FDA-Public Use
  Company Number: US-AMGEN INC.-USASP2013090696

PATIENT
  Sex: 0

DRUGS (3)
  1. EPOGEN [Suspect]
     Indication: PRODUCT USED FOR UNKNOWN INDICATION
     Dosage: 3200 UNIT, UNK
     Route: 042
  2. HECTOROL [Suspect]
     Indication: PRODUCT USED FOR UNKNOWN INDICATION
     Dosage: 4 MUG, UNK
     Route: 042
     Dates: start: 20081003, end: 20090417
  3. HEPARIN [Concomitant]
     Dosage: 1000 UNIT, UNK
     Route: 042

REACTIONS (7)
  - Dry mouth [Unknown]
  - Malaise [Unknown]
  - Feeling hot [Unknown]
  - Dyspnoea [Unknown]
  - Abdominal discomfort [Unknown]
  - Back pain [Unknown]
  - Drug hypersensitivity [Unknown]
